FAERS Safety Report 14023443 (Version 1)
Quarter: 2017Q3

REPORT INFORMATION
  Report Type: Spontaneous
  Country: US (occurrence: US)
  Receive Date: 20170929
  Receipt Date: 20170929
  Transmission Date: 20171128
  Serious: Yes (Life-Threatening)
  Sender: FDA-Public Use
  Company Number: PHHY2017US142122

PATIENT
  Age: 24 Year
  Sex: Female

DRUGS (1)
  1. LOPERAMIDE [Suspect]
     Active Substance: LOPERAMIDE
     Indication: PRODUCT USED FOR UNKNOWN INDICATION
     Dosage: 120 MG, UNK
     Route: 065

REACTIONS (8)
  - Lethargy [Unknown]
  - Somnolence [Unknown]
  - Tachycardia [Unknown]
  - Respiratory arrest [Unknown]
  - Pyrexia [Unknown]
  - Hypoxia [Unknown]
  - Respiratory depression [Unknown]
  - Drug abuse [Unknown]
